FAERS Safety Report 9305523 (Version 1)
Quarter: 2013Q2

REPORT INFORMATION
  Report Type: Spontaneous
  Country: IT (occurrence: IT)
  Receive Date: 20130523
  Receipt Date: 20130523
  Transmission Date: 20140414
  Serious: Yes (Other)
  Sender: FDA-Public Use
  Company Number: IT-SANOFI-AVENTIS-2013SA049084

PATIENT
  Age: 23 Year
  Sex: Female
  Weight: 48 kg

DRUGS (13)
  1. MUSCORIL [Suspect]
     Indication: SELF INJURIOUS BEHAVIOUR
     Route: 048
     Dates: start: 20110516, end: 20110516
  2. FERLIXIT [Suspect]
     Indication: SELF INJURIOUS BEHAVIOUR
     Route: 048
     Dates: start: 20110516, end: 20110516
  3. VOLTAREN [Suspect]
     Indication: SELF INJURIOUS BEHAVIOUR
     Route: 048
     Dates: start: 20110516, end: 20110516
  4. CEFIXORAL [Suspect]
     Indication: SELF INJURIOUS BEHAVIOUR
     Route: 048
     Dates: start: 20110516, end: 20110516
  5. VERMOX [Suspect]
     Indication: SELF INJURIOUS BEHAVIOUR
     Route: 048
     Dates: start: 20110516, end: 20110516
  6. BENTELAN [Suspect]
     Indication: SELF INJURIOUS BEHAVIOUR
     Route: 048
     Dates: start: 20110516, end: 20110516
  7. TACHIPIRINA [Suspect]
     Indication: SELF INJURIOUS BEHAVIOUR
     Route: 048
     Dates: start: 20110516, end: 20110516
  8. ZIRTEC [Suspect]
     Indication: SELF INJURIOUS BEHAVIOUR
     Route: 048
     Dates: start: 20110516, end: 20110516
  9. MOMENDOL [Suspect]
     Indication: SELF INJURIOUS BEHAVIOUR
     Route: 048
     Dates: start: 20110516, end: 20110516
  10. LEXOTAN [Suspect]
     Indication: SELF INJURIOUS BEHAVIOUR
     Route: 048
     Dates: start: 20110516, end: 20110516
  11. FLUCONAZOLE [Suspect]
     Indication: SELF INJURIOUS BEHAVIOUR
     Route: 065
     Dates: start: 20110516, end: 20110516
  12. IBUPROFEN [Suspect]
     Indication: SELF INJURIOUS BEHAVIOUR
     Route: 065
     Dates: start: 20110516, end: 20110516
  13. NICOTINE [Suspect]
     Indication: SELF INJURIOUS BEHAVIOUR
     Route: 065
     Dates: start: 20110516, end: 20110516

REACTIONS (1)
  - Intentional self-injury [Unknown]
